FAERS Safety Report 15074912 (Version 1)
Quarter: 2018Q2

REPORT INFORMATION
  Report Type: Report from Study
  Country: US (occurrence: US)
  Receive Date: 20180627
  Receipt Date: 20180627
  Transmission Date: 20180711
  Serious: Yes (Other)
  Sender: FDA-Public Use
  Company Number: US-SAOL THERAPEUTICS-2017SAO01607

PATIENT
  Age: 60 Year
  Sex: Female

DRUGS (24)
  1. DILAUDID [Suspect]
     Active Substance: HYDROMORPHONE HYDROCHLORIDE
     Dosage: 0.442 MG, \DAY- MAX DOSE
     Route: 037
     Dates: start: 20170130, end: 20170316
  2. COMPOUNDED BACLOFEN [Suspect]
     Active Substance: BACLOFEN
     Dosage: 98.13 ?G, \DAY- MAX DOSE
     Route: 037
     Dates: start: 20170413
  3. DILAUDID [Suspect]
     Active Substance: HYDROMORPHONE HYDROCHLORIDE
     Dosage: 0.27962 MG, \DAY- MAX DOSE
     Route: 037
     Dates: start: 20170119, end: 20170130
  4. BUPIVACAINE. [Suspect]
     Active Substance: BUPIVACAINE
     Dosage: 9.983 MG, \DAY
     Route: 037
     Dates: start: 20170316, end: 20170413
  5. COMPOUNDED BACLOFEN [Suspect]
     Active Substance: BACLOFEN
     Dosage: 95.04 ?G, \DAY- MAX DOSE
     Route: 037
     Dates: start: 20170316, end: 20170413
  6. DILAUDID [Suspect]
     Active Substance: HYDROMORPHONE HYDROCHLORIDE
     Dosage: 0.249 MG, \DAY
     Route: 037
     Dates: start: 20170413
  7. DILAUDID [Suspect]
     Active Substance: HYDROMORPHONE HYDROCHLORIDE
     Dosage: 0.32709 MG, \DAY- MAX DOSE
     Route: 037
     Dates: start: 20170413
  8. BUPIVACAINE. [Suspect]
     Active Substance: BUPIVACAINE
     Dosage: 12.598 MG, \DAY
     Route: 037
     Dates: start: 20170119, end: 20170130
  9. BUPIVACAINE. [Suspect]
     Active Substance: BUPIVACAINE
     Dosage: 13.281 MG, \DAY- MAX DOSE
     Route: 037
     Dates: start: 20170130, end: 20170316
  10. BUPIVACAINE. [Suspect]
     Active Substance: BUPIVACAINE
     Dosage: 14.255 MG, \DAY- MAX DOSE
     Route: 037
     Dates: start: 20170316, end: 20170413
  11. BUPIVACAINE. [Suspect]
     Active Substance: BUPIVACAINE
     Dosage: 19.625 MG, \DAY- MAX DOSE
     Route: 037
     Dates: start: 20170413
  12. DILAUDID [Suspect]
     Active Substance: HYDROMORPHONE HYDROCHLORIDE
     Dosage: 0.299 MG, \DAY
     Route: 037
     Dates: start: 20170130, end: 20170316
  13. COMPOUNDED BACLOFEN [Suspect]
     Active Substance: BACLOFEN
     Dosage: 41.943 ?G, \DAY- MAX DOSE
     Route: 037
     Dates: start: 20170119, end: 20170130
  14. DILAUDID [Suspect]
     Active Substance: HYDROMORPHONE HYDROCHLORIDE
     Dosage: 0.209 MG, \DAY
     Route: 037
     Dates: start: 20170119, end: 20170130
  15. COMPOUNDED BACLOFEN [Suspect]
     Active Substance: BACLOFEN
     Dosage: 88.54 ?G, \DAY- MAX DOSE
     Route: 037
     Dates: start: 20170130, end: 20170316
  16. COMPOUNDED BACLOFEN [Suspect]
     Active Substance: BACLOFEN
     Dosage: 74.94 ?G, \DAY
     Route: 037
     Dates: start: 20170413
  17. DILAUDID [Suspect]
     Active Substance: HYDROMORPHONE HYDROCHLORIDE
     Dosage: 249.57 ?G, \DAY
     Route: 037
     Dates: start: 20170316, end: 20170413
  18. COMPOUNDED BACLOFEN [Suspect]
     Active Substance: BACLOFEN
     Dosage: 31.496 ?G, \DAY
     Route: 037
     Dates: start: 20170119, end: 20170130
  19. BUPIVACAINE. [Suspect]
     Active Substance: BUPIVACAINE
     Dosage: 16.777 MG, \DAY- MAX DOSE
     Route: 037
     Dates: start: 20170119, end: 20170130
  20. BUPIVACAINE. [Suspect]
     Active Substance: BUPIVACAINE
     Dosage: 8.988 MG, \DAY
     Route: 037
     Dates: start: 20170130, end: 20170316
  21. DILAUDID [Suspect]
     Active Substance: HYDROMORPHONE HYDROCHLORIDE
     Dosage: 356.39 ?G, \DAY- MAX DOSE
     Route: 037
     Dates: start: 20170316, end: 20170413
  22. BUPIVACAINE. [Suspect]
     Active Substance: BUPIVACAINE
     Dosage: 14.987 MG, \DAY
     Route: 037
     Dates: start: 20170413
  23. COMPOUNDED BACLOFEN [Suspect]
     Active Substance: BACLOFEN
     Dosage: 59.92 ?G, \DAY
     Route: 037
     Dates: start: 20170130, end: 20170316
  24. COMPOUNDED BACLOFEN [Suspect]
     Active Substance: BACLOFEN
     Dosage: 66.55 ?G, \DAY
     Route: 037
     Dates: start: 20170316, end: 20170413

REACTIONS (2)
  - Dyspnoea [Recovered/Resolved]
  - Incontinence [Recovered/Resolved]

NARRATIVE: CASE EVENT DATE: 20170221
